FAERS Safety Report 8775942 (Version 2)
Quarter: 2012Q4

REPORT INFORMATION
  Report Type: 
  Country: US (occurrence: US)
  Receive Date: 20120910
  Receipt Date: 20121022
  Transmission Date: 20130627
  Serious: No
  Sender: FDA-Public Use
  Company Number: US-B.I. PHARMACEUTICALS,INC./RIDGEFIELD-2012-BP-22167BP

PATIENT
  Age: 84 Year
  Sex: Female

DRUGS (5)
  1. TRADJENTA [Suspect]
     Indication: TYPE 2 DIABETES MELLITUS
     Dosage: 5 mg
     Dates: start: 20120823, end: 20120906
  2. BYSTOLIC [Concomitant]
     Indication: HYPERTENSION
     Dosage: 10 mg
     Dates: start: 20120419
  3. LOSARTAAN [Concomitant]
     Indication: HYPERTENSION
     Dosage: 25 mg
  4. LIPITOR [Concomitant]
     Indication: HYPERLIPIDAEMIA
     Dosage: 20 mg
  5. PLAVIX [Concomitant]
     Indication: PERIPHERAL VASCULAR DISORDER
     Dosage: 75 mg

REACTIONS (1)
  - Urine output decreased [Recovered/Resolved]
